FAERS Safety Report 25606871 (Version 2)
Quarter: 2025Q3

REPORT INFORMATION
  Report Type: Spontaneous
  Country: US (occurrence: US)
  Receive Date: 20250725
  Receipt Date: 20250911
  Transmission Date: 20251021
  Serious: No
  Sender: PFIZER
  Company Number: US-PFIZER INC-202500147645

PATIENT
  Age: 9 Year
  Sex: Male
  Weight: 8.163 kg

DRUGS (2)
  1. GENOTROPIN [Suspect]
     Active Substance: SOMATROPIN
     Indication: Growth hormone deficiency
     Dosage: ALTERNATES BETWEEN 0.12 AND 0.14 EVERY OTHER DAY FOR A AVERAGE OF 0.13 EVERY DAY
     Dates: start: 2025
  2. GENOTROPIN [Suspect]
     Active Substance: SOMATROPIN
     Dosage: ALTERNATES BETWEEN 0.12 AND 0.14 EVERY OTHER DAY FOR A AVERAGE OF 0.13 EVERY DAY
     Dates: start: 2025

REACTIONS (4)
  - Product prescribing error [Unknown]
  - Drug dose omission by device [Unknown]
  - Device leakage [Unknown]
  - Device breakage [Unknown]

NARRATIVE: CASE EVENT DATE: 20250101
